FAERS Safety Report 5506237-2 (Version None)
Quarter: 2007Q4

REPORT INFORMATION
  Report Type: 
  Country: None (occurrence: None)
  Receive Date: 20071101
  Receipt Date: 20071016
  Transmission Date: 20080405
  Serious: Yes (Hospitalization)
  Sender: FDA-Public Use
  Company Number: 8027432

PATIENT
  Age: 74 Year
  Sex: Female
  Weight: 82 kg

DRUGS (9)
  1. KEPPRA [Suspect]
     Indication: EPILEPSY
     Dosage: 500 MG 3/D PO
     Route: 048
     Dates: start: 20060816, end: 20070725
  2. KEPPRA [Suspect]
     Indication: EPILEPSY
     Dosage: PO
     Route: 048
     Dates: start: 20070726, end: 20070820
  3. CETIRIZINE HCL [Concomitant]
  4. VENTOLIN [Concomitant]
  5. ALEPSAL [Concomitant]
  6. TRILEPTAL [Concomitant]
  7. BECOTIDE [Concomitant]
  8. EUPHYLLINE [Concomitant]
  9. DIANATALVIC [Concomitant]

REACTIONS (5)
  - ACUTE RESPIRATORY FAILURE [None]
  - ASTHMA [None]
  - CARDIAC FAILURE [None]
  - NO THERAPEUTIC RESPONSE [None]
  - TOOTH DISORDER [None]
